FAERS Safety Report 8304638-0 (Version None)
Quarter: 2012Q2

REPORT INFORMATION
  Report Type: 
  Country: None (occurrence: None)
  Receive Date: 20120423
  Receipt Date: 20120416
  Transmission Date: 20120825
  Serious: No
  Sender: FDA-Public Use
  Company Number: US-PFIZER INC-2012081090

PATIENT
  Sex: Female
  Weight: 56.689 kg

DRUGS (7)
  1. COLCHICINE [Concomitant]
     Dosage: 0.6 MG
  2. LYRICA [Suspect]
     Indication: NEUROPATHY PERIPHERAL
     Dosage: 50 MG, 1X/DAY
     Route: 048
     Dates: start: 20120214, end: 20120301
  3. OSTEO BI-FLEX [Concomitant]
     Dosage: UNK
  4. VITAMIN D [Concomitant]
     Dosage: UNK
  5. FISH OIL [Concomitant]
     Dosage: UNK
  6. LYRICA [Suspect]
     Dosage: 75 MG, 2X/DAY
     Route: 048
     Dates: start: 20120301
  7. CALCIUM [Concomitant]
     Dosage: UNK

REACTIONS (1)
  - ENURESIS [None]
